FAERS Safety Report 8520131-4 (Version None)
Quarter: 2012Q3

REPORT INFORMATION
  Report Type: 
  Country: None (occurrence: None)
  Receive Date: 20120719
  Receipt Date: 20120713
  Transmission Date: 20120928
  Serious: Yes (Hospitalization, Other)
  Sender: FDA-Public Use
  Company Number: US-AMGEN-USASP2011009115

PATIENT
  Age: 36 Year
  Sex: Female
  Weight: 103.86 kg

DRUGS (2)
  1. PERCOCET [Concomitant]
     Indication: PAIN
     Dosage: UNK
  2. ENBREL [Suspect]
     Indication: RHEUMATOID ARTHRITIS
     Dosage: UNK
     Dates: start: 20010101

REACTIONS (10)
  - RHEUMATOID ARTHRITIS [None]
  - DYSHIDROSIS [None]
  - POST PROCEDURAL HAEMORRHAGE [None]
  - THYROID CANCER METASTATIC [None]
  - METASTASES TO LUNG [None]
  - PSEUDOMONAL SEPSIS [None]
  - DEPRESSION [None]
  - SLEEP DISORDER [None]
  - ENDOMETRIAL CANCER [None]
  - METASTASES TO KIDNEY [None]
